FAERS Safety Report 23054143 (Version 1)
Quarter: 2023Q4

REPORT INFORMATION
  Report Type: Spontaneous
  Country: US (occurrence: None)
  Receive Date: 20231010
  Receipt Date: 20231010
  Transmission Date: 20240109
  Serious: Yes (Disabling)
  Sender: FDA-Public Use
  Company Number: None

PATIENT
  Age: 63 Year
  Sex: Male
  Weight: 74.25 kg

DRUGS (1)
  1. TYRVAYA [Suspect]
     Active Substance: VARENICLINE TARTRATE
     Indication: Dry eye
     Dosage: OTHER QUANTITY : 1 SPRAY(S);?FREQUENCY : AT BEDTIME;?OTHER ROUTE : NSAL SPRAY;?
     Route: 050
     Dates: start: 20231007, end: 20231008

REACTIONS (4)
  - Nasal discomfort [None]
  - Rhinalgia [None]
  - Eye discharge [None]
  - Uveitis [None]

NARRATIVE: CASE EVENT DATE: 20231008
